FAERS Safety Report 4526930-8 (Version None)
Quarter: 2004Q4

REPORT INFORMATION
  Report Type: 
  Country: None (occurrence: None)
  Receive Date: 20041209
  Receipt Date: 20041025
  Transmission Date: 20050328
  Serious: Yes (Hospitalization)
  Sender: FDA-Public Use
  Company Number: 2004-03556

PATIENT
  Age: 69 Year
  Sex: Male

DRUGS (3)
  1. IMMUCYST (BCG - IT (CONNAUGHT)),AVENTIS PASTEUR LTD.,LOT NOT REP,I6 [Suspect]
     Indication: BLADDER CANCER
     Dosage: (81.0 MG), B.IN.,BLADDER
     Route: 043
     Dates: start: 20040914, end: 20041019
  2. BEZAFIBRATE [Concomitant]
  3. GLYCLOPYRRAMIDE [Concomitant]

REACTIONS (6)
  - EATING DISORDER [None]
  - FACE OEDEMA [None]
  - OEDEMA PERIPHERAL [None]
  - PRURITUS [None]
  - PYREXIA [None]
  - URTICARIA [None]
